FAERS Safety Report 24835404 (Version 1)
Quarter: 2025Q1

REPORT INFORMATION
  Report Type: Spontaneous
  Country: US (occurrence: None)
  Receive Date: 20250110
  Receipt Date: 20250110
  Transmission Date: 20250409
  Serious: Yes (Hospitalization)
  Sender: FDA-CTU
  Company Number: None

PATIENT
  Age: 71 Year
  Sex: Male
  Weight: 126 kg

DRUGS (1)
  1. SOLU-MEDROL [Suspect]
     Active Substance: METHYLPREDNISOLONE SODIUM SUCCINATE
     Indication: Gout
     Route: 042
     Dates: start: 20241122, end: 20250110

REACTIONS (4)
  - Chest discomfort [None]
  - Feeling hot [None]
  - Blood pressure decreased [None]
  - Dizziness [None]

NARRATIVE: CASE EVENT DATE: 20250104
